FAERS Safety Report 6062050-1 (Version None)
Quarter: 2009Q1

REPORT INFORMATION
  Report Type: 
  Country: None (occurrence: None)
  Receive Date: 20090202
  Receipt Date: 20090121
  Transmission Date: 20090719
  Serious: Yes (Death, Life-Threatening, Hospitalization, Other)
  Sender: FDA-Public Use
  Company Number: FR-GILEAD-2007-0013752

PATIENT
  Sex: Male

DRUGS (8)
  1. TRUVADA [Suspect]
     Indication: HIV INFECTION
     Route: 048
     Dates: end: 20070101
  2. TRUVADA [Suspect]
     Dates: start: 20070629
  3. PREZISTA [Suspect]
     Indication: HIV INFECTION
     Route: 048
  4. ISENSTRESS [Suspect]
     Indication: HIV INFECTION
     Route: 048
     Dates: start: 20070105
  5. NORVIR [Concomitant]
  6. ZELITREX [Concomitant]
  7. PROZAC [Concomitant]
  8. FUNGIZONE [Concomitant]

REACTIONS (10)
  - DIARRHOEA [None]
  - DIFFUSE LARGE B-CELL LYMPHOMA STAGE IV [None]
  - DRUG INEFFECTIVE [None]
  - FEMORAL NECK FRACTURE [None]
  - HEPATIC NEOPLASM MALIGNANT [None]
  - HEPATITIS B [None]
  - HEPATITIS CHOLESTATIC [None]
  - LYMPHOMA [None]
  - NEPHROPATHY TOXIC [None]
  - WEIGHT DECREASED [None]
